FAERS Safety Report 18380002 (Version 1)
Quarter: 2020Q4

REPORT INFORMATION
  Report Type: Spontaneous
  Country: FR (occurrence: FR)
  Receive Date: 20201013
  Receipt Date: 20201013
  Transmission Date: 20210114
  Serious: Yes (Death, Life-Threatening)
  Sender: FDA-Public Use
  Company Number: FR-PFIZER INC-2020395609

PATIENT
  Age: 11 Year
  Sex: Female
  Weight: 39.1 kg

DRUGS (2)
  1. VINCRISTINE SULFATE. [Suspect]
     Active Substance: VINCRISTINE SULFATE
     Indication: NEPHROBLASTOMA
     Dosage: 1 DF, WEEKLY
     Route: 042
     Dates: start: 20200814, end: 20200904
  2. COSMEGEN [Suspect]
     Active Substance: DACTINOMYCIN
     Indication: NEPHROBLASTOMA
     Dosage: 1 DF, WEEKLY
     Route: 042
     Dates: start: 20200814, end: 20200828

REACTIONS (2)
  - Venoocclusive liver disease [Fatal]
  - Disseminated intravascular coagulation [Fatal]

NARRATIVE: CASE EVENT DATE: 20200904
